FAERS Safety Report 9366692 (Version 1)
Quarter: 2013Q2

REPORT INFORMATION
  Report Type: Spontaneous
  Country: US (occurrence: US)
  Receive Date: 20130625
  Receipt Date: 20130625
  Transmission Date: 20140414
  Serious: No
  Sender: FDA-Public Use
  Company Number: US-PFIZER INC-2013187802

PATIENT
  Sex: Female

DRUGS (6)
  1. LIDOCAINE HCL [Suspect]
     Dosage: UNK
  2. CORTISONE [Suspect]
     Dosage: UNK
  3. VISTARIL [Suspect]
     Dosage: UNK
  4. SERTRALINE HCL [Suspect]
     Dosage: UNK
  5. CODEINE [Suspect]
     Dosage: UNK
  6. TRAMADOL [Suspect]
     Dosage: UNK

REACTIONS (1)
  - Drug hypersensitivity [Unknown]
